FAERS Safety Report 8488140-1 (Version None)
Quarter: 2012Q3

REPORT INFORMATION
  Report Type: 
  Country: None (occurrence: None)
  Receive Date: 20120705
  Receipt Date: 20120702
  Transmission Date: 20120928
  Serious: Yes (Life-Threatening, Hospitalization)
  Sender: FDA-Public Use
  Company Number: PHHO2012US001877

PATIENT
  Sex: Female
  Weight: 139 kg

DRUGS (8)
  1. BENICAR HCT [Concomitant]
     Indication: HYPERTENSION
     Dosage: 40 MG, BID
     Route: 048
     Dates: start: 20090101
  2. TEKTURNA [Concomitant]
     Indication: HYPERTENSION
     Dosage: 300 MG, QD
     Route: 048
     Dates: start: 20101208
  3. AFINITOR [Suspect]
     Indication: PANCREATIC NEUROENDOCRINE TUMOUR
     Dosage: 10 MG, UNK
     Route: 048
     Dates: start: 20090501, end: 20120128
  4. CARVEDILOL [Concomitant]
     Indication: HYPERTENSION
     Dosage: 6.25 MG, TID
     Route: 048
     Dates: start: 20091118
  5. ASCORBIC ACID [Concomitant]
     Indication: ANAEMIA
     Dosage: 500 MG, QD
     Route: 048
     Dates: start: 20100701
  6. WARFARIN SODIUM [Concomitant]
     Indication: PROPHYLAXIS
     Dosage: 3 MG, QD
     Route: 048
     Dates: start: 20030401
  7. IRON [Concomitant]
     Indication: ANAEMIA
     Dosage: 65 MG, QD
     Route: 048
     Dates: start: 20100701
  8. ZINC SULFATE [Concomitant]
     Indication: ANAEMIA
     Dosage: 50 MG, QD
     Route: 048
     Dates: start: 20111001

REACTIONS (1)
  - CEREBROVASCULAR ACCIDENT [None]
